FAERS Safety Report 5133448-0 (Version None)
Quarter: 2006Q4

REPORT INFORMATION
  Report Type: 
  Country: None (occurrence: None)
  Receive Date: 20061024
  Receipt Date: 20060928
  Transmission Date: 20070319
  Serious: Yes (Other)
  Sender: FDA-Public Use
  Company Number: PHEH2006US12315

PATIENT
  Age: 88 Year
  Sex: Female

DRUGS (8)
  1. EXJADE [Suspect]
     Indication: BLOOD IRON INCREASED
     Dosage: 1250 MG, QD
     Route: 048
     Dates: start: 20060918
  2. EXJADE [Suspect]
     Dosage: 1250 MG, QD
     Route: 048
  3. DIOVAN [Concomitant]
     Dosage: 160 UNK, UNK
     Route: 048
  4. PREDNISONE TAB [Concomitant]
     Dosage: 7 MG, UNK
     Route: 048
  5. FOLIC ACID [Concomitant]
  6. COUMADIN [Concomitant]
  7. SYNTHROID [Concomitant]
  8. CENTRUM SILVER [Suspect]

REACTIONS (9)
  - COUGH [None]
  - DRUG INTERACTION [None]
  - DYSARTHRIA [None]
  - EYE PAIN [None]
  - INFECTION [None]
  - NAUSEA [None]
  - VISION BLURRED [None]
  - VISUAL DISTURBANCE [None]
  - VOMITING [None]
